FAERS Safety Report 8303494 (Version 2)
Quarter: 2013Q1

REPORT INFORMATION
  Report Type: Spontaneous
  Country: US (occurrence: US)
  Receive Date: 20111220
  Receipt Date: 20121218
  Transmission Date: 20140127
  Serious: Yes (Other)
  Sender: FDA-Public Use
  Company Number: PHEH2011US011624

PATIENT
  Age: 63 Year
  Sex: Female

DRUGS (1)
  1. ZOMETA (ZOLEDRONATE) UNKNOWN [Suspect]
     Indication: BREAST DISORDER
     Dosage: UNK UKN, UNK
     Route: 042
     Dates: start: 20011201, end: 20111116

REACTIONS (3)
  - Osteonecrosis of jaw [Not Recovered/Not Resolved]
  - Impaired healing [Not Recovered/Not Resolved]
  - Dysgeusia [Not Recovered/Not Resolved]
